FAERS Safety Report 4446237-7 (Version None)
Quarter: 2004Q3

REPORT INFORMATION
  Report Type: 
  Country: None (occurrence: None)
  Receive Date: 20040902
  Receipt Date: 20030915
  Transmission Date: 20050211
  Serious: Yes (Hospitalization)
  Sender: FDA-Public Use
  Company Number: MK200309-0378-1

PATIENT
  Age: 61 Year
  Sex: Male
  Weight: 85 kg

DRUGS (7)
  1. HEXABRIX [Suspect]
     Indication: CORONARY ANGIOPLASTY
     Dosage: IA, SINGLE USE
     Dates: start: 20030731, end: 20030731
  2. HEARIN [Concomitant]
  3. PLAVIX [Concomitant]
  4. AGRASTAT [Concomitant]
  5. TENORMIN [Concomitant]
  6. XENETIX [Concomitant]
  7. PLAVIX [Concomitant]

REACTIONS (6)
  - ABDOMINAL PAIN [None]
  - ARRHYTHMIA [None]
  - BLOOD PRESSURE DECREASED [None]
  - ERYTHEMA [None]
  - MALAISE [None]
  - POST PROCEDURAL COMPLICATION [None]
